FAERS Safety Report 20170183 (Version 1)
Quarter: 2021Q4

REPORT INFORMATION
  Report Type: Spontaneous
  Country: HR (occurrence: HR)
  Receive Date: 20211210
  Receipt Date: 20211210
  Transmission Date: 20220303
  Serious: Yes (Other)
  Sender: FDA-Public Use
  Company Number: None

PATIENT
  Sex: Female

DRUGS (8)
  1. ATENOLOL [Suspect]
     Active Substance: ATENOLOL
     Dosage: 30 ATENOLOL
     Route: 048
     Dates: start: 20210726, end: 20210726
  2. VENLAFAXINE HYDROCHLORIDE [Suspect]
     Active Substance: VENLAFAXINE HYDROCHLORIDE
     Dosage: 54 VELAFAX
     Route: 048
     Dates: start: 20210726, end: 20210726
  3. ZALDIAR [Suspect]
     Active Substance: ACETAMINOPHEN\TRAMADOL HYDROCHLORIDE
     Dosage: 10 ZALDIAR
     Route: 048
     Dates: start: 20210726, end: 20210726
  4. XANAX [Suspect]
     Active Substance: ALPRAZOLAM
     Dosage: 50 XANAX
     Route: 048
     Dates: start: 20210726, end: 20210726
  5. ALPRAZOLAM [Suspect]
     Active Substance: ALPRAZOLAM
     Dosage: 30 HELEX
     Route: 048
     Dates: start: 20210726, end: 20210726
  6. CLOZAPINE [Suspect]
     Active Substance: CLOZAPINE
     Dosage: 4 LEPONEX
     Route: 048
     Dates: start: 20210726, end: 20210726
  7. NORMABEL [Suspect]
     Active Substance: DIAZEPAM
     Dosage: UNK
     Route: 048
     Dates: start: 20210726, end: 20210726
  8. LYRICA [Suspect]
     Active Substance: PREGABALIN
     Dosage: 42 LYRICA
     Route: 048
     Dates: start: 20210726, end: 20210726

REACTIONS (3)
  - Intentional overdose [Unknown]
  - Coma [Unknown]
  - Suicide attempt [Unknown]

NARRATIVE: CASE EVENT DATE: 20210726
